FAERS Safety Report 20059767 (Version 2)
Quarter: 2022Q2

REPORT INFORMATION
  Report Type: Spontaneous
  Country: AU (occurrence: AU)
  Receive Date: 20211111
  Receipt Date: 20220405
  Transmission Date: 20220721
  Serious: Yes (Other)
  Sender: FDA-Public Use
  Company Number: AU-LUNDBECK-DKLU3040514

PATIENT
  Age: 70 Year
  Sex: Female

DRUGS (1)
  1. BREXPIPRAZOLE [Suspect]
     Active Substance: BREXPIPRAZOLE
     Indication: Product used for unknown indication
     Dosage: 2 MG
     Route: 065

REACTIONS (1)
  - Electrocardiogram QT prolonged [Unknown]
